FAERS Safety Report 19488412 (Version 3)
Quarter: 2021Q3

REPORT INFORMATION
  Report Type: Report from Study
  Country: GB (occurrence: GB)
  Receive Date: 20210702
  Receipt Date: 20210928
  Transmission Date: 20211014
  Serious: Yes (Other)
  Sender: FDA-Public Use
  Company Number: GB-PFIZER INC-2021776685

PATIENT
  Age: 49 Year
  Sex: Female

DRUGS (14)
  1. LANSOPRAZOLE. [Concomitant]
     Active Substance: LANSOPRAZOLE
     Dosage: 30 MG, 2X/DAY
  2. FERROUS FUMARATE [Concomitant]
     Active Substance: FERROUS FUMARATE
     Dosage: 305 MG, 2X/DAY
  3. MORPHINE SULFATE. [Concomitant]
     Active Substance: MORPHINE SULFATE
     Dosage: 50 MG (MORPHINE SULPHATE MR 50 MG PLUS INHALERS)
  4. PREGABALIN. [Concomitant]
     Active Substance: PREGABALIN
     Dosage: 150 MG, 2X/DAY
  5. RALVO [Concomitant]
     Active Substance: LIDOCAINE HYDROCHLORIDE
     Dosage: UNK, UNKNOWN
     Route: 065
  6. EVACAL D3 [Concomitant]
     Dosage: UNK
  7. FLUOXETINE [Concomitant]
     Active Substance: FLUOXETINE HYDROCHLORIDE
     Dosage: 60 MG, 1X/DAY
  8. METHOTREXATE SODIUM. [Suspect]
     Active Substance: METHOTREXATE SODIUM
     Dosage: UNK UNK, UNKNOWN
     Route: 065
  9. OLUMIANT [Suspect]
     Active Substance: BARICITINIB
     Indication: RHEUMATOID ARTHRITIS
     Dosage: 4 MG, DAILY
     Route: 048
     Dates: start: 20200910
  10. ALENDRONIC ACID [Concomitant]
     Active Substance: ALENDRONIC ACID
     Dosage: UNK
     Route: 065
  11. VITAMIN B12 [VITAMIN B12 NOS] [Concomitant]
     Active Substance: CYANOCOBALAMIN
     Dosage: UNK
  12. OLUMIANT [Suspect]
     Active Substance: BARICITINIB
     Dosage: 4 MG, DAILY
     Route: 048
     Dates: start: 202008
  13. FUROSEMIDE. [Concomitant]
     Active Substance: FUROSEMIDE
     Dosage: 40 MG, 1X/DAY
  14. QUININE SULPHATE [Concomitant]
     Active Substance: QUININE SULFATE
     Dosage: 300 MG, EACH EVENING (300 MG NOCTE)

REACTIONS (3)
  - Haematocrit decreased [Unknown]
  - White blood cell count decreased [Not Recovered/Not Resolved]
  - Neutrophil count decreased [Not Recovered/Not Resolved]

NARRATIVE: CASE EVENT DATE: 202011
